FAERS Safety Report 23114868 (Version 2)
Quarter: 2025Q1

REPORT INFORMATION
  Report Type: Spontaneous
  Country: US (occurrence: US)
  Receive Date: 20231027
  Receipt Date: 20250210
  Transmission Date: 20250408
  Serious: Yes (Death, Other)
  Sender: VERTEX
  Company Number: US-VERTEX PHARMACEUTICALS-2023-004023

PATIENT
  Sex: Female

DRUGS (1)
  1. TRIKAFTA [Suspect]
     Active Substance: ELEXACAFTOR\IVACAFTOR\TEZACAFTOR
     Indication: Cystic fibrosis
     Route: 048
     Dates: start: 20191119

REACTIONS (2)
  - Colon cancer stage IV [Fatal]
  - Surgery [Unknown]

NARRATIVE: CASE EVENT DATE: 20210101
